FAERS Safety Report 9527777 (Version 1)
Quarter: 2013Q1

REPORT INFORMATION
  Report Type: Spontaneous
  Country: US (occurrence: None)
  Receive Date: 20130314
  Receipt Date: 20130314
  Transmission Date: 20140127
  Serious: No
  Sender: FDA-Public Use
  Company Number: 1211USA008054

PATIENT
  Age: 59 Year
  Sex: Female

DRUGS (3)
  1. PEGINTRON ( PEGINTERFERON ALFA-2B) POWDER FOR INJECTION [Suspect]
     Indication: HEPATITIS C
     Route: 058
  2. VICTRELIS ( BOCEPREVIR) CAPSULE [Suspect]
     Route: 048
  3. RIBAVIRIN (RIBAVIRIN) [Suspect]

REACTIONS (2)
  - Renal impairment [None]
  - Blood creatinine increased [None]
